FAERS Safety Report 17085829 (Version 1)
Quarter: 2019Q4

REPORT INFORMATION
  Report Type: Spontaneous
  Country: US (occurrence: US)
  Receive Date: 20191128
  Receipt Date: 20191128
  Transmission Date: 20200122
  Serious: Yes (Hospitalization, Other)
  Sender: FDA-Public Use
  Company Number: US-ALKEM LABORATORIES LIMITED-US-ALKEM-2019-03070

PATIENT
  Age: 69 Year
  Sex: Male

DRUGS (4)
  1. DIVALPROEX [Suspect]
     Active Substance: DIVALPROEX SODIUM
     Indication: AGITATION
     Dosage: 1250 MILLIGRAM, QD
     Route: 065
  2. HALOPERIDOL. [Suspect]
     Active Substance: HALOPERIDOL
     Indication: AGITATION
     Dosage: 10 MILLIGRAM, QD
     Route: 065
  3. HALOPERIDOL DECANOATE. [Suspect]
     Active Substance: HALOPERIDOL DECANOATE
     Indication: AGITATION
     Dosage: 150 MILLIGRAM/2 WEEKS
     Route: 065
  4. OLANZAPINE. [Suspect]
     Active Substance: OLANZAPINE
     Indication: AGITATION
     Dosage: 20 MILLIGRAM, QD
     Route: 065

REACTIONS (1)
  - Therapy non-responder [Unknown]
